FAERS Safety Report 7118426-4 (Version None)
Quarter: 2010Q4

REPORT INFORMATION
  Report Type: 
  Country: None (occurrence: None)
  Receive Date: 20101120
  Receipt Date: 20100813
  Transmission Date: 20110411
  Serious: Yes (Other)
  Sender: FDA-Public Use
  Company Number: US-WYE-H16929010

PATIENT
  Age: 62 Year
  Sex: Female
  Weight: 56.75 kg

DRUGS (3)
  1. ADVIL PM [Suspect]
     Indication: INSOMNIA
     Dosage: 2 LIQUI-GELS ONCE, ORAL
     Route: 048
     Dates: start: 20100812, end: 20100812
  2. ADVIL PM [Suspect]
     Indication: PAIN
     Dosage: 2 LIQUI-GELS ONCE, ORAL
     Route: 048
     Dates: start: 20100812, end: 20100812
  3. LOTREL [Concomitant]

REACTIONS (1)
  - RESTLESSNESS [None]
